FAERS Safety Report 7535365-5 (Version None)
Quarter: 2011Q2

REPORT INFORMATION
  Report Type: 
  Country: None (occurrence: None)
  Receive Date: 20110609
  Receipt Date: 20080229
  Transmission Date: 20111010
  Serious: Yes (Death, Hospitalization)
  Sender: FDA-Public Use
  Company Number: PHFR2008GB00909

PATIENT
  Sex: Male

DRUGS (3)
  1. DULOXETINE HYDROCHLORIDE [Concomitant]
     Indication: PSYCHOTIC DISORDER
     Dosage: 60 MG PER DAY
     Route: 048
     Dates: start: 20071001
  2. CLOZAPINE [Suspect]
     Indication: SCHIZOPHRENIA
     Dosage: 300 MG PER DAY
     Route: 048
     Dates: start: 20071024
  3. ARIPIPRAZOLE [Concomitant]
     Indication: DEPRESSION
     Dosage: 10 MG PER DAY
     Route: 048
     Dates: start: 20060701

REACTIONS (5)
  - HEPATIC ENCEPHALOPATHY [None]
  - LOBAR PNEUMONIA [None]
  - DEATH [None]
  - HEPATIC FAILURE [None]
  - LIVER DISORDER [None]
